FAERS Safety Report 10239060 (Version 1)
Quarter: 2014Q2

REPORT INFORMATION
  Report Type: Report from Study
  Country: US (occurrence: US)
  Receive Date: 20140616
  Receipt Date: 20140616
  Transmission Date: 20141212
  Serious: Yes (Death)
  Sender: FDA-Public Use
  Company Number: US-ACTELION-A-NJ2014-100056

PATIENT
  Age: 60 Year
  Sex: Female

DRUGS (3)
  1. MACITENTAN [Suspect]
     Indication: PRODUCT USED FOR UNKNOWN INDICATION
     Dosage: 10 MG, UNK
     Route: 048
     Dates: start: 20140514, end: 20140522
  2. REVATIO [Concomitant]
  3. WARFARIN [Concomitant]

REACTIONS (1)
  - Death [Fatal]
